FAERS Safety Report 7436836-2 (Version None)
Quarter: 2011Q2

REPORT INFORMATION
  Report Type: 
  Country: None (occurrence: None)
  Receive Date: 20110426
  Receipt Date: 20101213
  Transmission Date: 20111010
  Serious: Yes (Other)
  Sender: FDA-Public Use
  Company Number: US-BAYER-201035876NA

PATIENT
  Age: 25 Year
  Sex: Female
  Weight: 113.38 kg

DRUGS (16)
  1. EXCEDRIN (MIGRAINE) [Concomitant]
     Dosage: UNK UNK, PRN
     Dates: start: 20000101
  2. MOBIC [Concomitant]
     Indication: MUSCULOSKELETAL STIFFNESS
  3. OCELLA [Suspect]
     Indication: CONTRACEPTION
     Route: 048
     Dates: start: 20080712, end: 20090723
  4. ADIPEX [Concomitant]
     Indication: WEIGHT DECREASED
     Dosage: UNK
     Dates: start: 20080626, end: 20081001
  5. OCELLA [Suspect]
     Indication: PRODUCT USED FOR UNKNOWN INDICATION
  6. MELOXICAM [Concomitant]
     Indication: PAIN
     Dosage: UNK
     Dates: start: 20080902, end: 20090123
  7. LEVOTHYROXINE SODIUM [Concomitant]
     Dosage: UNK
     Dates: start: 20090101, end: 20100601
  8. YASMIN [Suspect]
     Indication: PRODUCT USED FOR UNKNOWN INDICATION
  9. MOBIC [Concomitant]
     Indication: PAIN
     Dosage: UNK
     Dates: start: 20080820, end: 20091101
  10. YASMIN [Suspect]
     Indication: ACNE
  11. VIRAL VACCINES [Concomitant]
     Dosage: UNK
     Dates: start: 20080401
  12. PREVACID [Concomitant]
     Indication: GASTROOESOPHAGEAL REFLUX DISEASE
     Dosage: UNK
     Dates: start: 20080926
  13. YASMIN [Suspect]
     Indication: CONTRACEPTION
     Route: 048
     Dates: start: 20071018, end: 20080614
  14. OCELLA [Suspect]
     Indication: ACNE
  15. VIRAL VACCINES [Concomitant]
     Dosage: UNK
     Dates: start: 20071219
  16. ADIPEX [Concomitant]
     Dosage: UNK
     Dates: start: 20101001

REACTIONS (3)
  - CHOLECYSTITIS [None]
  - CHOLELITHIASIS [None]
  - CHOLECYSTECTOMY [None]
